FAERS Safety Report 15223572 (Version 2)
Quarter: 2018Q3

REPORT INFORMATION
  Report Type: Spontaneous
  Country: TR (occurrence: TR)
  Receive Date: 20180731
  Receipt Date: 20180809
  Transmission Date: 20181010
  Serious: Yes (Hospitalization, Other)
  Sender: FDA-Public Use
  Company Number: TR-SA-2018SA203414

PATIENT
  Age: 36 Year
  Sex: Female

DRUGS (1)
  1. CLOMIFENE CITRATE [Suspect]
     Active Substance: CLOMIPHENE
     Indication: OVULATION DISORDER
     Dosage: 50 MG, QD

REACTIONS (4)
  - Chest pain [Recovered/Resolved]
  - Coronary artery stenosis [Recovered/Resolved]
  - Electrocardiogram ST segment elevation [Recovered/Resolved]
  - Acute myocardial infarction [Recovered/Resolved]
